FAERS Safety Report 12863274 (Version 4)
Quarter: 2016Q4

REPORT INFORMATION
  Report Type: Report from Study
  Country: JP (occurrence: JP)
  Receive Date: 20161019
  Receipt Date: 20161219
  Transmission Date: 20170207
  Serious: Yes (Death, Other)
  Sender: FDA-Public Use
  Company Number: JP-INCYTE CORPORATION-2016IN006611

PATIENT
  Age: 73 Year
  Sex: Male
  Weight: 52.9 kg

DRUGS (4)
  1. JAKAVI [Suspect]
     Active Substance: RUXOLITINIB
     Indication: MYELOFIBROSIS
     Dosage: 5 MG, BID
     Route: 048
     Dates: start: 20161005, end: 20161008
  2. BACTRAMIN [Concomitant]
     Active Substance: SULFAMETHOXAZOLE\TRIMETHOPRIM
     Indication: OPPORTUNISTIC INFECTION PROPHYLAXIS
     Dosage: 0.5 G, UNK
     Route: 048
     Dates: end: 20161008
  3. BACTRAMIN [Concomitant]
     Active Substance: SULFAMETHOXAZOLE\TRIMETHOPRIM
     Indication: PRODUCT USED FOR UNKNOWN INDICATION
  4. RED BLOOD CELLS-LEUKOCYTES REDUCED [Concomitant]
     Indication: MYELOFIBROSIS
     Dosage: UNK
     Route: 065

REACTIONS (5)
  - Blood albumin decreased [Unknown]
  - Lymphocyte count increased [Unknown]
  - Blood urea increased [Unknown]
  - Platelet count decreased [Unknown]
  - Gastrointestinal haemorrhage [Fatal]

NARRATIVE: CASE EVENT DATE: 20161009
